FAERS Safety Report 17925488 (Version 2)
Quarter: 2020Q3

REPORT INFORMATION
  Report Type: Report from Study
  Country: None (occurrence: US)
  Receive Date: 20200623
  Receipt Date: 20200823
  Transmission Date: 20201103
  Serious: Yes (Hospitalization)
  Sender: FDA-Public Use
  Company Number: US-ABBVIE-20K-163-3319082-00

PATIENT
  Sex: Male
  Weight: 118.04 kg

DRUGS (3)
  1. MELOXICAM. [Concomitant]
     Active Substance: MELOXICAM
     Indication: PRODUCT USED FOR UNKNOWN INDICATION
  2. HUMIRA [Suspect]
     Active Substance: ADALIMUMAB
     Indication: PSORIASIS
  3. HUMIRA [Suspect]
     Active Substance: ADALIMUMAB
     Indication: PSORIATIC ARTHROPATHY
     Route: 058
     Dates: start: 20190822, end: 202002

REACTIONS (11)
  - Near death experience [Unknown]
  - Psoriatic arthropathy [Recovering/Resolving]
  - Psoriasis [Not Recovered/Not Resolved]
  - Haemoptysis [Unknown]
  - Food poisoning [Recovering/Resolving]
  - Therapeutic product effect decreased [Unknown]
  - Gastroenteritis viral [Recovering/Resolving]
  - Bronchitis [Recovering/Resolving]
  - Viral infection [Unknown]
  - Alopecia [Unknown]
  - Influenza like illness [Unknown]

NARRATIVE: CASE EVENT DATE: 2020
